FAERS Safety Report 12343330 (Version 3)
Quarter: 2016Q3

REPORT INFORMATION
  Report Type: Spontaneous
  Country: US (occurrence: US)
  Receive Date: 20160418
  Receipt Date: 20160901
  Transmission Date: 20161109
  Serious: Yes (Other)
  Sender: FDA-Public Use
  Company Number: US-RELYPSA-RLY2016000337

PATIENT

DRUGS (1)
  1. VELTASSA [Suspect]
     Active Substance: PATIROMER
     Indication: HYPERKALAEMIA
     Dosage: 25.2 G, QD
     Route: 065
     Dates: start: 20160204

REACTIONS (1)
  - Faecaloma [Recovered/Resolved]

NARRATIVE: CASE EVENT DATE: 201602
